FAERS Safety Report 10458451 (Version 1)
Quarter: 2014Q3

REPORT INFORMATION
  Report Type: Spontaneous
  Country: US (occurrence: None)
  Receive Date: 20140916
  Receipt Date: 20140916
  Transmission Date: 20150326
  Serious: Yes (Hospitalization)
  Sender: FDA-Public Use
  Company Number: None

PATIENT
  Age: 60 Year
  Sex: Female

DRUGS (2)
  1. ATORVASTATIN 40 MG GREENSTONE BRAND [Suspect]
     Active Substance: ATORVASTATIN
     Dosage: 40 MG TABLETS, QHS/BEDTIME, ORAL
     Route: 048
  2. GEMFIBROZIL. [Suspect]
     Active Substance: GEMFIBROZIL
     Route: 048

REACTIONS (5)
  - Myalgia [None]
  - Blood creatine phosphokinase increased [None]
  - Chromaturia [None]
  - Liver function test abnormal [None]
  - Muscular weakness [None]

NARRATIVE: CASE EVENT DATE: 20140909
